FAERS Safety Report 4496341-2 (Version None)
Quarter: 2004Q4

REPORT INFORMATION
  Report Type: 
  Country: None (occurrence: None)
  Receive Date: 20041104
  Receipt Date: 20041026
  Transmission Date: 20050328
  Serious: Yes (Other)
  Sender: FDA-Public Use
  Company Number: S04-USA-07135-01

PATIENT
  Sex: 0

DRUGS (1)
  1. LEXAPRO [Suspect]

REACTIONS (1)
  - HEART RATE DECREASED [None]
